FAERS Safety Report 17016738 (Version 3)
Quarter: 2020Q3

REPORT INFORMATION
  Report Type: Spontaneous
  Country: US (occurrence: US)
  Receive Date: 20191111
  Receipt Date: 20200703
  Transmission Date: 20201102
  Serious: Yes (Death, Hospitalization, Other)
  Sender: FDA-Public Use
  Company Number: US-ASTRAZENECA-2019SF58464

PATIENT
  Sex: Female

DRUGS (68)
  1. PRILOSEC [Suspect]
     Active Substance: OMEPRAZOLE MAGNESIUM
     Route: 065
     Dates: start: 20131016
  2. HYDROCHLOROTHIAZIDE. [Concomitant]
     Active Substance: HYDROCHLOROTHIAZIDE
  3. NAPROXEN. [Concomitant]
     Active Substance: NAPROXEN
  4. FUROSEMIDE. [Concomitant]
     Active Substance: FUROSEMIDE
     Dates: start: 20131218
  5. DORZOLAMIDE [Concomitant]
     Active Substance: DORZOLAMIDE
  6. NEXIUM [Suspect]
     Active Substance: ESOMEPRAZOLE MAGNESIUM
     Route: 048
     Dates: start: 2002, end: 2015
  7. PANTOPRAZOLE [Suspect]
     Active Substance: PANTOPRAZOLE
     Dosage: GENERIC
     Route: 065
     Dates: start: 20090521, end: 20100204
  8. OXYCODONE [Concomitant]
     Active Substance: OXYCODONE
     Dates: start: 20131101
  9. ALPHAGAN P [Concomitant]
     Active Substance: BRIMONIDINE TARTRATE
  10. CHANTIX [Concomitant]
     Active Substance: VARENICLINE TARTRATE
  11. PROVENTIL [Concomitant]
     Active Substance: ALBUTEROL
  12. COLLAGENASE SANTYL [Concomitant]
     Active Substance: COLLAGENASE CLOSTRIDIUM HISTOLYTICUM
  13. LIPITOR [Concomitant]
     Active Substance: ATORVASTATIN CALCIUM
     Dates: start: 20140812
  14. ACETAMINOPHEN. [Concomitant]
     Active Substance: ACETAMINOPHEN
     Indication: PAIN
  15. CYCLOBENZAPRINE. [Concomitant]
     Active Substance: CYCLOBENZAPRINE
  16. ADVATE [Concomitant]
     Active Substance: ANTIHEMOPHILIC FACTOR, HUMAN RECOMBINANT
  17. OXYBUTYNIN. [Concomitant]
     Active Substance: OXYBUTYNIN CHLORIDE
  18. VITAMIN B6 [Concomitant]
     Active Substance: PYRIDOXINE HYDROCHLORIDE
  19. PRILOSEC [Suspect]
     Active Substance: OMEPRAZOLE MAGNESIUM
     Route: 048
     Dates: start: 2002, end: 2015
  20. PREVACID [Suspect]
     Active Substance: LANSOPRAZOLE
     Route: 065
     Dates: start: 2002, end: 2015
  21. LANTUS [Concomitant]
     Active Substance: INSULIN GLARGINE
     Dates: start: 20140128
  22. ALBUTEROL. [Concomitant]
     Active Substance: ALBUTEROL
  23. CEFALEXIN [Concomitant]
     Active Substance: CEPHALEXIN
  24. LACTULOSE. [Concomitant]
     Active Substance: LACTULOSE
  25. ONDANSETRON [Concomitant]
     Active Substance: ONDANSETRON
  26. METHYLPREDNISOLONE. [Concomitant]
     Active Substance: METHYLPREDNISOLONE
  27. OXYCODONE/APAP [Concomitant]
     Active Substance: ACETAMINOPHEN\OXYCODONE HYDROCHLORIDE
  28. LIDODERM [Concomitant]
     Active Substance: LIDOCAINE
  29. VITAMIN B12 [Concomitant]
     Active Substance: CYANOCOBALAMIN
  30. PRILOSEC [Suspect]
     Active Substance: OMEPRAZOLE MAGNESIUM
     Dosage: GENERIC OMEPRAZOLE 20MG + 40MG CAPSULE
     Route: 065
     Dates: start: 20100319, end: 20150617
  31. PREVACID [Suspect]
     Active Substance: LANSOPRAZOLE
     Route: 065
     Dates: start: 20020101, end: 20141231
  32. TRAMADOL. [Concomitant]
     Active Substance: TRAMADOL
  33. ENALAPRIL [Concomitant]
     Active Substance: ENALAPRIL
  34. AMOX/CLAV [Concomitant]
     Active Substance: AMOXICILLIN\CLAVULANATE POTASSIUM
  35. SIMVASTATIN. [Concomitant]
     Active Substance: SIMVASTATIN
  36. FOLIC ACID. [Concomitant]
     Active Substance: FOLIC ACID
  37. FLUCONAZOLE. [Concomitant]
     Active Substance: FLUCONAZOLE
     Dates: start: 20140401
  38. AMITRIPTYLINE [Concomitant]
     Active Substance: AMITRIPTYLINE
  39. LISINOPRIL. [Concomitant]
     Active Substance: LISINOPRIL
  40. ACETAMINOPHEN/COD [Concomitant]
  41. LANOXIN [Concomitant]
     Active Substance: DIGOXIN
  42. ISOSORBIDE. [Concomitant]
     Active Substance: ISOSORBIDE
  43. NOVOLOG [Concomitant]
     Active Substance: INSULIN ASPART
     Dates: start: 20140127
  44. GABAPENTIN. [Concomitant]
     Active Substance: GABAPENTIN
     Dates: start: 20131003
  45. DIOVAN [Concomitant]
     Active Substance: VALSARTAN
     Dates: start: 20131113
  46. ACTOS [Concomitant]
     Active Substance: PIOGLITAZONE HYDROCHLORIDE
  47. LEVAQUIN [Concomitant]
     Active Substance: LEVOFLOXACIN
  48. ALLOPURINOL. [Concomitant]
     Active Substance: ALLOPURINOL
  49. LYRICA [Concomitant]
     Active Substance: PREGABALIN
  50. SULPHAMETHOXAZOLE [Concomitant]
     Active Substance: SULFAMETHOXAZOLE
  51. TUSSIONEX PENNKINETIC [Concomitant]
     Active Substance: CHLORPHENIRAMINE\HYDROCODONE
  52. ADVAIR HFA [Concomitant]
     Active Substance: FLUTICASONE PROPIONATE\SALMETEROL XINAFOATE
  53. CEFADROXIL. [Concomitant]
     Active Substance: CEFADROXIL
  54. NEXIUM [Suspect]
     Active Substance: ESOMEPRAZOLE MAGNESIUM
     Route: 048
     Dates: start: 20070629
  55. METOCLOPRAMIDE. [Concomitant]
     Active Substance: METOCLOPRAMIDE
  56. COSOPT [Concomitant]
     Active Substance: DORZOLAMIDE HYDROCHLORIDE\TIMOLOL MALEATE
  57. PREDNISONE. [Concomitant]
     Active Substance: PREDNISONE
  58. NYSTATIN. [Concomitant]
     Active Substance: NYSTATIN
  59. CARVEDILOL. [Concomitant]
     Active Substance: CARVEDILOL
     Dates: start: 20131026
  60. NEXIUM [Suspect]
     Active Substance: ESOMEPRAZOLE MAGNESIUM
     Route: 048
     Dates: start: 20061002, end: 20070824
  61. PRILOSEC [Suspect]
     Active Substance: OMEPRAZOLE MAGNESIUM
     Route: 048
     Dates: start: 20020101, end: 20141231
  62. PRILOSEC [Suspect]
     Active Substance: OMEPRAZOLE MAGNESIUM
     Route: 065
     Dates: start: 20150224
  63. CLARITHROMYCIN. [Concomitant]
     Active Substance: CLARITHROMYCIN
  64. PROMETHAZINE [Concomitant]
     Active Substance: PROMETHAZINE HYDROCHLORIDE
  65. HYDROCODONE BITARTRATE AND ACETAMINOPHEN [Concomitant]
     Active Substance: ACETAMINOPHEN\HYDROCODONE BITARTRATE
  66. UREA. [Concomitant]
     Active Substance: UREA
  67. IBUPROFEN. [Concomitant]
     Active Substance: IBUPROFEN
     Indication: PAIN
  68. BENADRYL [Concomitant]
     Active Substance: DIPHENHYDRAMINE HYDROCHLORIDE
     Indication: HYPERSENSITIVITY

REACTIONS (2)
  - Chronic kidney disease [Unknown]
  - Death [Fatal]
